FAERS Safety Report 9449341 (Version 2)
Quarter: 2013Q3

REPORT INFORMATION
  Report Type: Spontaneous
  Country: US (occurrence: US)
  Receive Date: 20130808
  Receipt Date: 20130815
  Transmission Date: 20140515
  Serious: No
  Sender: FDA-Public Use
  Company Number: US-009507513-1307USA016325

PATIENT
  Age: 17 Year
  Sex: Female
  Weight: 86.17 kg

DRUGS (1)
  1. NEXPLANON [Suspect]
     Indication: CONTRACEPTION
     Dosage: 3 YEAR IMPLANT IN LEFT ARM
     Route: 059
     Dates: start: 20130325

REACTIONS (5)
  - Eating disorder [Unknown]
  - Menorrhagia [Unknown]
  - Implant site pain [Unknown]
  - Unintended pregnancy [Unknown]
  - Device kink [Unknown]
